FAERS Safety Report 15578287 (Version 1)
Quarter: 2018Q4

REPORT INFORMATION
  Report Type: Spontaneous
  Country: US (occurrence: US)
  Receive Date: 20181101
  Receipt Date: 20181101
  Transmission Date: 20190205
  Serious: Yes (Life-Threatening, Hospitalization)
  Sender: FDA-Public Use
  Company Number: None

PATIENT
  Age: 54 Year
  Sex: Male
  Weight: 58.5 kg

DRUGS (6)
  1. LORAZEPAM. [Concomitant]
     Active Substance: LORAZEPAM
  2. BENADRYL [Concomitant]
     Active Substance: DIPHENHYDRAMINE HYDROCHLORIDE
  3. ZYRTEC [Concomitant]
     Active Substance: CETIRIZINE HYDROCHLORIDE
  4. AMLODIPINE [Concomitant]
     Active Substance: AMLODIPINE BESYLATE
  5. GADAVIST [Suspect]
     Active Substance: GADOBUTROL
  6. PEPCID [Concomitant]
     Active Substance: FAMOTIDINE

REACTIONS (12)
  - Pruritus [None]
  - Headache [None]
  - Post procedural complication [None]
  - Lip swelling [None]
  - Chest discomfort [None]
  - Burning sensation [None]
  - Hypoaesthesia [None]
  - Oedema peripheral [None]
  - Dizziness [None]
  - Paraesthesia [None]
  - Swollen tongue [None]
  - Back pain [None]

NARRATIVE: CASE EVENT DATE: 20180728
